FAERS Safety Report 6714660-3 (Version None)
Quarter: 2010Q2

REPORT INFORMATION
  Report Type: 
  Country: None (occurrence: None)
  Receive Date: 20100507
  Receipt Date: 20100428
  Transmission Date: 20101027
  Serious: No
  Sender: FDA-Public Use
  Company Number: 2010BI004923

PATIENT
  Age: 45 Year
  Sex: Male

DRUGS (4)
  1. TYSABRI [Suspect]
     Indication: MULTIPLE SCLEROSIS
     Route: 042
     Dates: start: 20050224, end: 20050201
  2. TYSABRI [Suspect]
     Route: 042
     Dates: start: 20061109, end: 20091217
  3. AVONEX [Concomitant]
     Indication: MULTIPLE SCLEROSIS
     Route: 030
     Dates: start: 20050224
  4. AVONEX [Concomitant]
     Route: 030
     Dates: start: 19970401, end: 20061013

REACTIONS (1)
  - CD4 LYMPHOCYTES DECREASED [None]
